FAERS Safety Report 8765903 (Version 3)
Quarter: 2014Q3

REPORT INFORMATION
  Report Type: Spontaneous
  Country: US (occurrence: US)
  Receive Date: 20120904
  Receipt Date: 20140828
  Transmission Date: 20150326
  Serious: Yes (Hospitalization, Other)
  Sender: FDA-Public Use
  Company Number: US-009507513-2009SP027035

PATIENT
  Sex: Female
  Weight: 90.72 kg

DRUGS (4)
  1. NUVARING [Suspect]
     Active Substance: ETHINYL ESTRADIOL\ETONOGESTREL
     Indication: CONTRACEPTION
     Dates: start: 200803, end: 200809
  2. NUVARING [Suspect]
     Active Substance: ETHINYL ESTRADIOL\ETONOGESTREL
     Dates: start: 200803, end: 200809
  3. HYDROCODONE [Concomitant]
     Active Substance: HYDROCODONE
     Indication: PRODUCT USED FOR UNKNOWN INDICATION
     Dosage: UNK UNK, PRN
  4. TYLENOL [Concomitant]
     Active Substance: ACETAMINOPHEN
     Indication: HEADACHE
     Dosage: 400 MG, PRN

REACTIONS (10)
  - Weight increased [Unknown]
  - Deep vein thrombosis [Recovering/Resolving]
  - Anxiety [Not Recovered/Not Resolved]
  - Depression [Unknown]
  - Anaemia [Unknown]
  - Pulmonary embolism [Recovered/Resolved]
  - Iron deficiency anaemia [Unknown]
  - Urinary tract infection [Unknown]
  - Muscle spasms [Unknown]
  - Constipation [Unknown]

NARRATIVE: CASE EVENT DATE: 20080709
